FAERS Safety Report 5112958-6 (Version None)
Quarter: 2006Q3

REPORT INFORMATION
  Report Type: 
  Country: None (occurrence: None)
  Receive Date: 20060920
  Receipt Date: 20060914
  Transmission Date: 20061208
  Serious: Yes (Hospitalization)
  Sender: FDA-Public Use
  Company Number: FLX20060008

PATIENT
  Age: 47 Year
  Sex: Female

DRUGS (8)
  1. FLUOXETINE [Suspect]
     Indication: DEPRESSION
     Dosage: PO
     Route: 048
     Dates: start: 20060101
  2. AMITRIPTYLINE HCL [Suspect]
     Indication: DEPRESSION
     Dosage: PO
     Route: 048
     Dates: start: 20060101
  3. LORAZEPAM [Suspect]
     Dosage: PO
     Route: 048
     Dates: start: 20060101
  4. HYDROCODONE/ACETAMINOPHEN 5/500 [Suspect]
  5. OLANZAPINE [Suspect]
     Dosage: 10 MG
  6. VENLAFAXINE HCL EXTENDED-RELEASE [Suspect]
  7. METOPROLOL SUCCINATE [Suspect]
  8. PANTOPRAZOLE 40MG [Suspect]

REACTIONS (14)
  - AREFLEXIA [None]
  - BLOOD PH INCREASED [None]
  - ELECTROCARDIOGRAM QRS COMPLEX PROLONGED [None]
  - HEPATIC FAILURE [None]
  - HYPOTENSION [None]
  - ISCHAEMIC HEPATITIS [None]
  - LOSS OF CONSCIOUSNESS [None]
  - MULTIPLE DRUG OVERDOSE [None]
  - PCO2 DECREASED [None]
  - PO2 INCREASED [None]
  - RHABDOMYOLYSIS [None]
  - SINUS BRADYCARDIA [None]
  - THERAPY NON-RESPONDER [None]
  - UNRESPONSIVE TO STIMULI [None]
